FAERS Safety Report 8024309-8 (Version None)
Quarter: 2012Q1

REPORT INFORMATION
  Report Type: 
  Country: None (occurrence: None)
  Receive Date: 20120103
  Receipt Date: 20111201
  Transmission Date: 20120608
  Serious: Yes (Hospitalization)
  Sender: FDA-Public Use
  Company Number: 2011SP057423

PATIENT
  Age: 57 Year
  Sex: Female
  Weight: 70.4 kg

DRUGS (31)
  1. BLINDED MK-5172 [Suspect]
     Indication: HEPATITIS C
     Dosage: 8 DF, TID, PO
     Route: 048
     Dates: start: 20110920, end: 20110920
  2. BLINDED MK-5172 [Suspect]
     Indication: HEPATITIS C
     Dosage: 8 DF, TID, PO
     Route: 048
     Dates: start: 20111117, end: 20111123
  3. BLINDED MK-5172 [Suspect]
     Indication: HEPATITIS C
     Dosage: 8 DF, TID, PO
     Route: 048
     Dates: start: 20111020, end: 20111116
  4. BLINDED MK-5172 [Suspect]
     Indication: HEPATITIS C
     Dosage: 8 DF, TID, PO
     Route: 048
     Dates: start: 20110920, end: 20111019
  5. VITAMIN B COMPLEX CAP [Concomitant]
  6. LYSINE [Concomitant]
  7. WELLBUTRIN XL [Concomitant]
  8. PEG-INTRON [Suspect]
     Indication: HEPATITIS C
     Dosage: 0.4 ML, QW, SC
     Route: 058
     Dates: start: 20110926, end: 20110926
  9. PEG-INTRON [Suspect]
     Indication: HEPATITIS C
     Dosage: 0.4 ML, QW, SC
     Route: 058
     Dates: start: 20110920, end: 20110920
  10. PEG-INTRON [Suspect]
     Indication: HEPATITIS C
     Dosage: 0.4 ML, QW, SC
     Route: 058
     Dates: start: 20111003, end: 20111003
  11. PEG-INTRON [Suspect]
     Indication: HEPATITIS C
     Dosage: 0.4 ML, QW, SC
     Route: 058
     Dates: start: 20111010, end: 20111010
  12. PEG-INTRON [Suspect]
     Indication: HEPATITIS C
     Dosage: 0.4 ML, QW, SC
     Route: 058
     Dates: start: 20111114, end: 20111114
  13. PEG-INTRON [Suspect]
     Indication: HEPATITIS C
     Dosage: 0.4 ML, QW, SC
     Route: 058
     Dates: start: 20111017, end: 20111017
  14. PEG-INTRON [Suspect]
     Indication: HEPATITIS C
     Dosage: 0.4 ML, QW, SC
     Route: 058
     Dates: start: 20111031, end: 20111031
  15. PEG-INTRON [Suspect]
     Indication: HEPATITIS C
     Dosage: 0.4 ML, QW, SC
     Route: 058
     Dates: start: 20111024, end: 20111024
  16. PEG-INTRON [Suspect]
     Indication: HEPATITIS C
     Dosage: 0.4 ML, QW, SC
     Route: 058
     Dates: start: 20111107, end: 20111107
  17. LORATADINE [Concomitant]
  18. IBUPROFEN [Concomitant]
  19. EFFEXOR [Concomitant]
  20. PLACEBO [Suspect]
     Indication: HEPATITIS C
     Dosage: 12 DF, TID, PO
     Route: 048
     Dates: start: 20111117, end: 20111123
  21. PLACEBO [Suspect]
     Indication: HEPATITIS C
     Dosage: 12 DF, TID, PO
     Route: 048
     Dates: start: 20111020, end: 20111116
  22. VALTREX [Concomitant]
  23. DEPLIN [Concomitant]
  24. OMEPRAZOLE [Concomitant]
  25. REBETOL [Suspect]
     Indication: HEPATITIS C
     Dosage: 2;3 DF, QAM, PO
     Route: 048
     Dates: start: 20111020, end: 20111116
  26. REBETOL [Suspect]
     Indication: HEPATITIS C
     Dosage: 2;3 DF, QAM, PO
     Route: 048
     Dates: start: 20110920, end: 20111019
  27. REBETOL [Suspect]
     Indication: HEPATITIS C
     Dosage: 2;3 DF, QAM, PO
     Route: 048
     Dates: start: 20111117, end: 20111123
  28. REBETOL [Suspect]
     Indication: HEPATITIS C
     Dosage: 2;3 DF, QAM, PO
     Route: 048
     Dates: start: 20111129
  29. REBETOL [Suspect]
     Indication: HEPATITIS C
     Dosage: 2;3 DF, QAM, PO
     Route: 048
     Dates: start: 20111124
  30. WELLBUTRIN [Concomitant]
  31. IBUPROFEN [Concomitant]

REACTIONS (5)
  - ASTHENIA [None]
  - DEHYDRATION [None]
  - VOMITING [None]
  - TREMOR [None]
  - NAUSEA [None]
